FAERS Safety Report 15371647 (Version 4)
Quarter: 2019Q1

REPORT INFORMATION
  Report Type: Spontaneous
  Country: GB (occurrence: GB)
  Receive Date: 20180911
  Receipt Date: 20190318
  Transmission Date: 20190417
  Serious: Yes (Hospitalization, Other)
  Sender: FDA-Public Use
  Company Number: PHHY2017GB091161

PATIENT
  Age: 32 Year
  Sex: Female

DRUGS (9)
  1. PREDNISOLONE. [Suspect]
     Active Substance: PREDNISOLONE
     Indication: LUNG DISORDER
     Dosage: 5 MG, QD
     Route: 065
  2. AZATHIOPRINE. [Suspect]
     Active Substance: AZATHIOPRINE
     Indication: DERMATOMYOSITIS
     Dosage: 100 MG, QD
     Route: 065
  3. CYCLOPHOSPHAMIDE. [Concomitant]
     Active Substance: CYCLOPHOSPHAMIDE
     Indication: DERMATOMYOSITIS
     Route: 042
     Dates: start: 2011
  4. CYCLOPHOSPHAMIDE. [Concomitant]
     Active Substance: CYCLOPHOSPHAMIDE
     Indication: LUNG DISORDER
  5. PREDNISOLONE. [Suspect]
     Active Substance: PREDNISOLONE
     Indication: DERMATOMYOSITIS
     Dosage: 10 MG, QD
     Route: 065
  6. RITUXIMAB. [Suspect]
     Active Substance: RITUXIMAB
     Indication: LUNG DISORDER
     Dosage: 1 G, BID
     Route: 065
     Dates: start: 201403
  7. RITUXIMAB. [Suspect]
     Active Substance: RITUXIMAB
     Dosage: 1 G, UNK
     Route: 065
     Dates: start: 201501
  8. RITUXIMAB. [Suspect]
     Active Substance: RITUXIMAB
     Indication: DERMATOMYOSITIS
     Dosage: 1 G, BID
     Route: 065
     Dates: start: 201305
  9. AZATHIOPRINE. [Suspect]
     Active Substance: AZATHIOPRINE
     Indication: LUNG DISORDER

REACTIONS (13)
  - B-lymphocyte count decreased [Recovered/Resolved]
  - Memory impairment [Recovering/Resolving]
  - Pancytopenia [Recovered/Resolved]
  - Anterograde amnesia [Recovering/Resolving]
  - Infection reactivation [Recovered/Resolved]
  - Abnormal behaviour [Recovering/Resolving]
  - Pancytopenia [Recovered/Resolved]
  - Pleocytosis [Recovered/Resolved]
  - Pyrexia [Recovering/Resolving]
  - Aphasia [Recovering/Resolving]
  - Encephalitis [Recovered/Resolved]
  - Herpes virus infection [Recovered/Resolved]
  - Simple partial seizures [Recovering/Resolving]

NARRATIVE: CASE EVENT DATE: 2015
